FAERS Safety Report 17970171 (Version 1)
Quarter: 2020Q3

REPORT INFORMATION
  Report Type: Spontaneous
  Country: FR (occurrence: FR)
  Receive Date: 20200701
  Receipt Date: 20200701
  Transmission Date: 20201103
  Serious: Yes (Other)
  Sender: FDA-Public Use
  Company Number: FR-ALSI-202000227

PATIENT
  Age: 78 Year
  Sex: Female
  Weight: 59 kg

DRUGS (2)
  1. OXYGEN. [Suspect]
     Active Substance: OXYGEN
     Indication: CHRONIC OBSTRUCTIVE PULMONARY DISEASE
     Route: 055
     Dates: start: 20171221
  2. HOMEOPLASMINE, POMMADE [Suspect]
     Active Substance: HERBALS\HOMEOPATHICS
     Route: 003

REACTIONS (4)
  - Accident [Recovering/Resolving]
  - Labelled drug-drug interaction medication error [Recovering/Resolving]
  - Intentional product misuse [Recovering/Resolving]
  - Thermal burn [Recovering/Resolving]
